FAERS Safety Report 13613347 (Version 1)
Quarter: 2017Q2

REPORT INFORMATION
  Report Type: Spontaneous
  Country: US (occurrence: US)
  Receive Date: 20170605
  Receipt Date: 20170605
  Transmission Date: 20170830
  Serious: No
  Sender: FDA-Public Use
  Company Number: US-TEVA-774387USA

PATIENT
  Age: 78 Year
  Sex: Female
  Weight: 54.48 kg

DRUGS (2)
  1. QNASL [Suspect]
     Active Substance: BECLOMETHASONE DIPROPIONATE
     Indication: RHINITIS ALLERGIC
     Dosage: 2 PUFFS IN EACH NOSTRIL
     Route: 045
     Dates: start: 20170524
  2. FLUOROMETHOLONE. [Suspect]
     Active Substance: FLUOROMETHOLONE

REACTIONS (3)
  - Pain in extremity [Unknown]
  - Feeling abnormal [Unknown]
  - Fatigue [Unknown]

NARRATIVE: CASE EVENT DATE: 20170525
